FAERS Safety Report 6571937-2 (Version None)
Quarter: 2010Q1

REPORT INFORMATION
  Report Type: 
  Country: None (occurrence: None)
  Receive Date: 20100205
  Receipt Date: 20100201
  Transmission Date: 20100710
  Serious: Yes (Other)
  Sender: FDA-Public Use
  Company Number: GB-ROCHE-682669

PATIENT
  Age: 36 Year

DRUGS (1)
  1. AVASTIN [Suspect]
     Dosage: DOSE: 1.25 MG IN 0.05 ML
     Route: 031

REACTIONS (1)
  - MACULAR HOLE [None]
